FAERS Safety Report 25754035 (Version 2)
Quarter: 2025Q3

REPORT INFORMATION
  Report Type: Spontaneous
  Country: CO (occurrence: CO)
  Receive Date: 20250903
  Receipt Date: 20250910
  Transmission Date: 20251021
  Serious: Yes (Other)
  Sender: REGENERON
  Company Number: CO-BAYER-2025A115055

PATIENT
  Age: 66 Year
  Sex: Female

DRUGS (1)
  1. EYLEA [Suspect]
     Active Substance: AFLIBERCEPT
     Indication: Macular degeneration
     Dosage: 40 MG, Q1MON, SOLUTION FOR INJECTION IN PRE-FILLED SYRINGE, 40 MG/ML
     Route: 031
     Dates: start: 20250715

REACTIONS (1)
  - Intraocular lens implant [Unknown]

NARRATIVE: CASE EVENT DATE: 20250715
